FAERS Safety Report 6085273-4 (Version None)
Quarter: 2009Q1

REPORT INFORMATION
  Report Type: 
  Country: None (occurrence: None)
  Receive Date: 20090218
  Receipt Date: 20090203
  Transmission Date: 20090719
  Serious: Yes (Other)
  Sender: FDA-Public Use
  Company Number: TPH-00149

PATIENT
  Age: 27 Year
  Sex: Female

DRUGS (2)
  1. TRIQUILAR LOT NUMBER: 1608A [Suspect]
     Indication: ORAL CONTRACEPTION
     Dosage: ORAL
     Route: 048
     Dates: start: 20010101, end: 20080409
  2. ASPIRIN [Concomitant]

REACTIONS (7)
  - CAESAREAN SECTION [None]
  - DRUG EXPOSURE DURING PREGNANCY [None]
  - DRUG INEFFECTIVE [None]
  - HEADACHE [None]
  - PREGNANCY INDUCED HYPERTENSION [None]
  - PREGNANCY ON ORAL CONTRACEPTIVE [None]
  - URINARY TRACT INFECTION [None]
